FAERS Safety Report 5197312-3 (Version None)
Quarter: 2007Q1

REPORT INFORMATION
  Report Type: 
  Country: None (occurrence: None)
  Receive Date: 20070103
  Receipt Date: 20061221
  Transmission Date: 20070707
  Serious: Yes (Hospitalization)
  Sender: FDA-Public Use
  Company Number: DE-AMGEN-UK204559

PATIENT
  Sex: Male

DRUGS (1)
  1. NEUPOGEN [Suspect]
     Indication: CHEMOTHERAPY
     Route: 058

REACTIONS (8)
  - APPLICATION SITE VESICLES [None]
  - BLOOD BLISTER [None]
  - ERYTHEMA [None]
  - GAIT DISTURBANCE [None]
  - INJECTION SITE PAIN [None]
  - INJECTION SITE REACTION [None]
  - SKIN INDURATION [None]
  - SKIN SWELLING [None]
